FAERS Safety Report 24896386 (Version 2)
Quarter: 2025Q1

REPORT INFORMATION
  Report Type: Spontaneous
  Country: FR (occurrence: FR)
  Receive Date: 20250128
  Receipt Date: 20250217
  Transmission Date: 20250408
  Serious: Yes (Death, Other)
  Sender: TEVA
  Company Number: None

PATIENT
  Age: 73 Year
  Sex: Female
  Weight: 70 kg

DRUGS (6)
  1. PACLITAXEL [Suspect]
     Active Substance: PACLITAXEL
     Indication: Breast cancer
     Route: 042
     Dates: start: 20241211, end: 20241211
  2. MORPHINE [Suspect]
     Active Substance: MORPHINE
     Indication: Pain
     Route: 065
     Dates: start: 202412, end: 20241216
  3. ATORVASTATIN [Concomitant]
     Active Substance: ATORVASTATIN
     Indication: Product used for unknown indication
     Route: 065
  4. RABEPRAZOLE [Concomitant]
     Active Substance: RABEPRAZOLE
     Indication: Product used for unknown indication
     Route: 065
  5. XGEVA [Concomitant]
     Active Substance: DENOSUMAB
     Indication: Product used for unknown indication
     Route: 065
  6. LUMIRELAX [Concomitant]
     Indication: Product used for unknown indication
     Route: 065

REACTIONS (2)
  - Death [Fatal]
  - Abdominal pain [Unknown]

NARRATIVE: CASE EVENT DATE: 20241214
